FAERS Safety Report 5832139-8 (Version None)
Quarter: 2008Q3

REPORT INFORMATION
  Report Type: 
  Country: None (occurrence: None)
  Receive Date: 20080804
  Receipt Date: 20080723
  Transmission Date: 20090109
  Serious: No
  Sender: FDA-Public Use
  Company Number: GB-PFIZER INC-2008049137

PATIENT
  Age: 61 Year
  Sex: Male
  Weight: 90 kg

DRUGS (5)
  1. EPIRUBICIN HYDROCHLORIDE [Suspect]
     Indication: GASTRIC CANCER
     Route: 042
     Dates: start: 20071219, end: 20071219
  2. CISPLATIN [Suspect]
     Indication: GASTRIC CANCER
     Route: 042
     Dates: start: 20071219, end: 20071219
  3. XELODA [Suspect]
     Indication: GASTRIC CANCER
     Route: 048
     Dates: start: 20071220, end: 20080101
  4. DEXAMETHASONE [Concomitant]
     Dates: start: 20071219, end: 20080101
  5. GRANISETRON HCL [Concomitant]
     Dates: start: 20071219, end: 20071222

REACTIONS (1)
  - NO ADVERSE EVENT [None]
